FAERS Safety Report 8409551-6 (Version None)
Quarter: 2012Q2

REPORT INFORMATION
  Report Type: 
  Country: None (occurrence: None)
  Receive Date: 20120531
  Receipt Date: 20120531
  Transmission Date: 20120825
  Serious: No
  Sender: FDA-Public Use
  Company Number: None

PATIENT
  Sex: Male

DRUGS (2)
  1. LEXAPRO [Suspect]
  2. TRAZODONE HCL [Suspect]

REACTIONS (7)
  - LOSS OF CONSCIOUSNESS [None]
  - SEROTONIN SYNDROME [None]
  - FAECAL INCONTINENCE [None]
  - URINARY INCONTINENCE [None]
  - DYSPNOEA [None]
  - HYPERTHERMIA [None]
  - CHROMATOPSIA [None]
